FAERS Safety Report 9636557 (Version 5)
Quarter: 2014Q2

REPORT INFORMATION
  Report Type: Spontaneous
  Country: US (occurrence: US)
  Receive Date: 20131021
  Receipt Date: 20140410
  Transmission Date: 20141212
  Serious: Yes (Life-Threatening, Hospitalization, Disabling, Other)
  Sender: FDA-Public Use
  Company Number: US-MERCK-1310USA009183

PATIENT
  Sex: Male
  Weight: 109.3 kg

DRUGS (10)
  1. JANUVIA [Suspect]
     Indication: TYPE 2 DIABETES MELLITUS
     Dosage: 25 MG, QD
     Route: 048
     Dates: start: 20120312, end: 20120411
  2. BYETTA [Suspect]
     Indication: TYPE 2 DIABETES MELLITUS
     Dosage: 5 MICROGRAM, BID
     Route: 058
     Dates: start: 20120410
  3. BYETTA [Suspect]
     Dosage: 10 MICROGRAM, UNK
     Route: 058
     Dates: start: 20120510, end: 20120531
  4. LANTUS [Concomitant]
     Indication: TYPE 2 DIABETES MELLITUS
  5. HUMALOG [Concomitant]
     Indication: TYPE 2 DIABETES MELLITUS
  6. METFORMIN [Concomitant]
     Indication: TYPE 2 DIABETES MELLITUS
     Dosage: 1 G, BID
  7. GLIPIZIDE [Concomitant]
     Indication: TYPE 2 DIABETES MELLITUS
     Dosage: 10 MG, BID
  8. GLUCOPHAGE [Concomitant]
     Dosage: 1000 MG, BID
     Route: 048
     Dates: start: 20111003
  9. PRILOSEC [Concomitant]
     Dosage: 20 MG, QD
     Route: 048
     Dates: start: 20110822
  10. ZOCOR [Concomitant]
     Dosage: 20 MG, HS
     Route: 048
     Dates: start: 20111003

REACTIONS (20)
  - Malignant neoplasm of ampulla of Vater [Not Recovered/Not Resolved]
  - Pancreaticoduodenectomy [Unknown]
  - Benign pancreatic neoplasm [Unknown]
  - Pancreatic lesion excision [Unknown]
  - Cholecystectomy [Unknown]
  - Pancreatitis [Recovering/Resolving]
  - Diabetes mellitus inadequate control [Unknown]
  - Aortic dilatation [Unknown]
  - Arteriosclerosis coronary artery [Unknown]
  - Atelectasis [Unknown]
  - Pulmonary mass [Unknown]
  - Renal cyst [Unknown]
  - Diverticulum intestinal [Unknown]
  - Bile duct stent insertion [Unknown]
  - Haemangioma of liver [Unknown]
  - Fat necrosis [Unknown]
  - Pain [Unknown]
  - Nasopharyngitis [Unknown]
  - Transaminases increased [Recovering/Resolving]
  - Nausea [Not Recovered/Not Resolved]
